FAERS Safety Report 8870505 (Version 1)
Quarter: 2012Q4

REPORT INFORMATION
  Report Type: Spontaneous
  Country: US (occurrence: None)
  Receive Date: 20121026
  Receipt Date: 20121026
  Transmission Date: 20130627
  Serious: Yes (Other)
  Sender: FDA-Public Use
  Company Number: None

PATIENT
  Sex: Female
  Weight: 19.46 kg

DRUGS (2)
  1. HERCEPTIN [Suspect]
     Indication: BREAST CANCER
     Dosage: 252mg Q3W IV
     Route: 042
     Dates: start: 20120709, end: 20120910
  2. ADRIAMYCIN [Suspect]
     Indication: BREAST CANCER
     Dosage: 82MG Q2W x 4 IV
     Route: 042
     Dates: start: 20120507, end: 20120618

REACTIONS (2)
  - Electrocardiogram Q waves [None]
  - Ejection fraction decreased [None]
